FAERS Safety Report 22954683 (Version 3)
Quarter: 2024Q2

REPORT INFORMATION
  Report Type: Spontaneous
  Country: US (occurrence: US)
  Receive Date: 20230918
  Receipt Date: 20240612
  Transmission Date: 20240716
  Serious: No
  Sender: FDA-Public Use
  Company Number: US-VERTEX PHARMACEUTICALS-2023-013551

PATIENT
  Sex: Male

DRUGS (1)
  1. TRIKAFTA [Suspect]
     Active Substance: ELEXACAFTOR\IVACAFTOR\TEZACAFTOR
     Indication: Cystic fibrosis
     Dosage: GRANULES (100MG ELEXA/ 50MG TEZA/ 75MG IVA AND 75MG IVA)
     Route: 048
     Dates: start: 20230531

REACTIONS (3)
  - Autism spectrum disorder [Unknown]
  - Polyuria [Not Recovered/Not Resolved]
  - Incontinence [Recovering/Resolving]

NARRATIVE: CASE EVENT DATE: 20230101
